FAERS Safety Report 6640641-4 (Version None)
Quarter: 2010Q1

REPORT INFORMATION
  Report Type: 
  Country: None (occurrence: None)
  Receive Date: 20100318
  Receipt Date: 20100305
  Transmission Date: 20100710
  Serious: Yes (Hospitalization)
  Sender: FDA-Public Use
  Company Number: US-ELI_LILLY_AND_COMPANY-US200904007313

PATIENT
  Sex: Male
  Weight: 147.39 kg

DRUGS (8)
  1. BYETTA [Suspect]
     Dosage: 10 UG, 2/D
     Route: 058
     Dates: start: 20051201, end: 20070516
  2. LOVASTATIN [Concomitant]
     Indication: BLOOD CHOLESTEROL INCREASED
  3. TOPROL-XL [Concomitant]
     Indication: HYPERTENSION
  4. METFORMIN HYDROCHLORIDE [Concomitant]
     Indication: TYPE 2 DIABETES MELLITUS
  5. LEXAPRO [Concomitant]
     Indication: DEPRESSION
  6. GLIPIZIDE [Concomitant]
     Indication: TYPE 2 DIABETES MELLITUS
  7. FISH OIL [Concomitant]
     Dosage: 1000 MG, 4/D
  8. DILAUDID [Concomitant]
     Dates: start: 20070518, end: 20070501

REACTIONS (5)
  - ABDOMINAL DISCOMFORT [None]
  - ANXIETY [None]
  - BLOOD GLUCOSE INCREASED [None]
  - HEART RATE DECREASED [None]
  - PANCREATITIS ACUTE [None]
